FAERS Safety Report 4366324-1 (Version None)
Quarter: 2004Q2

REPORT INFORMATION
  Report Type: 
  Country: None (occurrence: None)
  Receive Date: 20040527
  Receipt Date: 20030603
  Transmission Date: 20050107
  Serious: No
  Sender: FDA-Public Use
  Company Number: US-GLAXOSMITHKLINE-A0411086A

PATIENT
  Age: 64 Year
  Sex: Female

DRUGS (9)
  1. VENTOLIN [Suspect]
     Dosage: 2PUFF SIX TIMES PER DAY
     Route: 055
  2. AZMACORT [Concomitant]
  3. MEDROL [Concomitant]
  4. ASPIRIN [Concomitant]
  5. PAXIL [Concomitant]
  6. XANAX [Concomitant]
  7. MULTIVITAMIN [Concomitant]
  8. FOSAMAX [Concomitant]
  9. CALCIUM [Concomitant]

REACTIONS (3)
  - CHEST DISCOMFORT [None]
  - EXTRASYSTOLES [None]
  - PHARMACEUTICAL PRODUCT COMPLAINT [None]
